FAERS Safety Report 11592927 (Version 1)
Quarter: 2015Q4

REPORT INFORMATION
  Report Type: Spontaneous
  Country: US (occurrence: None)
  Receive Date: 20151002
  Receipt Date: 20151002
  Transmission Date: 20160304
  Serious: Yes (Disabling)
  Sender: FDA-Public Use
  Company Number: None

PATIENT
  Age: 39 Year
  Sex: Male
  Weight: 102.06 kg

DRUGS (1)
  1. TRAMADOL. [Suspect]
     Active Substance: TRAMADOL
     Indication: BACK PAIN
     Dosage: 1 PILL FOUR TIMES DAILY TAKEN BY MOUTH
     Route: 048

REACTIONS (6)
  - Muscle spasms [None]
  - Muscular weakness [None]
  - Seizure [None]
  - Neuromuscular toxicity [None]
  - Muscle fatigue [None]
  - Headache [None]

NARRATIVE: CASE EVENT DATE: 20151001
